FAERS Safety Report 18113206 (Version 4)
Quarter: 2021Q1

REPORT INFORMATION
  Report Type: Report from Study
  Country: US (occurrence: US)
  Receive Date: 20200805
  Receipt Date: 20210303
  Transmission Date: 20210419
  Serious: Yes (Other)
  Sender: FDA-Public Use
  Company Number: US-AEGERION PHARMACEUTICAL, INC-AEGR004735

PATIENT
  Age: 48 Year
  Sex: Female
  Weight: 69.84 kg

DRUGS (2)
  1. JUXTAPID [Suspect]
     Active Substance: LOMITAPIDE MESYLATE
     Dosage: 5 MG, FIVE DAYS A WEEK
     Route: 048
     Dates: start: 20190624
  2. JUXTAPID [Suspect]
     Active Substance: LOMITAPIDE MESYLATE
     Indication: TYPE IIA HYPERLIPIDAEMIA
     Dosage: 5 MG, SIX DAYS A WEEK
     Route: 048
     Dates: start: 20190624

REACTIONS (13)
  - Blood cholesterol abnormal [Unknown]
  - Vomiting [Not Recovered/Not Resolved]
  - Flank pain [Not Recovered/Not Resolved]
  - Diarrhoea [Not Recovered/Not Resolved]
  - Hiatus hernia [Recovering/Resolving]
  - Constipation [Recovering/Resolving]
  - Abdominal pain upper [Not Recovered/Not Resolved]
  - Blood cholesterol increased [Not Recovered/Not Resolved]
  - Abnormal weight gain [Unknown]
  - Inappropriate schedule of product administration [Unknown]
  - Cholecystectomy [Unknown]
  - Nausea [Recovering/Resolving]
  - Liver function test increased [Not Recovered/Not Resolved]

NARRATIVE: CASE EVENT DATE: 202001
